FAERS Safety Report 5524222-1 (Version None)
Quarter: 2007Q4

REPORT INFORMATION
  Report Type: 
  Country: None (occurrence: None)
  Receive Date: 20071121
  Receipt Date: 20071112
  Transmission Date: 20080405
  Serious: Yes (Other)
  Sender: FDA-Public Use
  Company Number: JP-PFIZER INC-2007085653

PATIENT
  Sex: Female
  Weight: 48.5 kg

DRUGS (10)
  1. SILDENAFIL (PAH) [Suspect]
     Indication: PULMONARY HYPERTENSION
     Route: 048
     Dates: start: 20071002, end: 20071021
  2. TRACLEER [Suspect]
     Indication: PULMONARY HYPERTENSION
     Route: 048
  3. ENALAPRIL MALEATE [Suspect]
     Indication: SCLERODERMA RENAL CRISIS
     Route: 048
  4. FUROSEMIDE [Suspect]
     Indication: RIGHT VENTRICULAR FAILURE
     Dosage: DAILY DOSE:40MG
     Route: 042
  5. DORNER [Concomitant]
     Dosage: DAILY DOSE:60MCG
     Route: 048
  6. WARFARIN SODIUM [Concomitant]
     Dosage: DAILY DOSE:2.5MG
     Route: 048
  7. ALLOPURINOL [Concomitant]
     Indication: HYPERURICAEMIA
     Route: 048
  8. MUCOSTA [Concomitant]
     Indication: GASTRIC ULCER
     Route: 048
  9. TAKEPRON [Concomitant]
     Indication: GASTRIC ULCER
     Route: 048
  10. INOVAN [Concomitant]
     Route: 042

REACTIONS (2)
  - BLOOD PRESSURE DECREASED [None]
  - DRUG INEFFECTIVE [None]
